FAERS Safety Report 12351502 (Version 1)
Quarter: 2016Q2

REPORT INFORMATION
  Report Type: Spontaneous
  Country: US (occurrence: US)
  Receive Date: 20160510
  Receipt Date: 20160510
  Transmission Date: 20160815
  Serious: No
  Sender: FDA-Public Use
  Company Number: US-ASTRAZENECA-2016SE35040

PATIENT
  Age: 19765 Day
  Sex: Female
  Weight: 99.8 kg

DRUGS (6)
  1. OXYCONTIN [Concomitant]
     Active Substance: OXYCODONE HYDROCHLORIDE
     Indication: BACK PAIN
  2. ZOLPIDEM TARTRATE. [Concomitant]
     Active Substance: ZOLPIDEM TARTRATE
     Indication: SLEEP DISORDER
  3. MOVANTIK [Suspect]
     Active Substance: NALOXEGOL OXALATE
     Route: 048
     Dates: start: 20160311
  4. FUROSEMIDE. [Concomitant]
     Active Substance: FUROSEMIDE
     Indication: THROMBOSIS PROPHYLAXIS
  5. FENTANYL. [Concomitant]
     Active Substance: FENTANYL
     Indication: BACK PAIN
  6. CLONIDINE HYDROCHLORIDE. [Concomitant]
     Active Substance: CLONIDINE HYDROCHLORIDE
     Indication: BLOOD PRESSURE MEASUREMENT

REACTIONS (1)
  - Constipation [Recovering/Resolving]

NARRATIVE: CASE EVENT DATE: 20160325
